FAERS Safety Report 8927414 (Version 2)
Quarter: 2013Q2

REPORT INFORMATION
  Report Type: Report from Study
  Country: US (occurrence: US)
  Receive Date: 20121127
  Receipt Date: 20130405
  Transmission Date: 20140414
  Serious: Yes (Hospitalization)
  Sender: FDA-Public Use
  Company Number: US-SANOFI-AVENTIS-2012SA084498

PATIENT
  Age: 64 Year
  Sex: Male
  Weight: 92.9 kg

DRUGS (26)
  1. DOCETAXEL [Suspect]
     Indication: PROSTATE CANCER
     Route: 041
     Dates: start: 20120222, end: 20120222
  2. DOCETAXEL [Suspect]
     Indication: PROSTATE CANCER
     Route: 041
     Dates: start: 20120605, end: 20120605
  3. INVESTIGATIONAL DRUG [Suspect]
     Indication: PROSTATE CANCER
     Route: 065
     Dates: start: 20120214, end: 20120214
  4. INVESTIGATIONAL DRUG [Suspect]
     Indication: PROSTATE CANCER
     Route: 065
     Dates: start: 20120612, end: 20120612
  5. PETHIDINE [Concomitant]
     Indication: CHILLS
     Dosage: EVEY 4 HOURS (50 MG,AS REQUIRED),
     Route: 048
  6. IBUPROFEN [Concomitant]
     Indication: CHILLS
     Route: 048
  7. LOPERAMIDE HYDROCHLORIDE [Concomitant]
     Indication: DIARRHOEA
     Route: 048
  8. DEXAMETHASONE [Concomitant]
     Indication: PREMEDICATION
     Route: 048
  9. ONDANSETRON [Concomitant]
     Indication: PREMEDICATION
     Dosage: NOT OTHERWISE SPECIFIED
     Route: 041
  10. DIPHENHYDRAMINE HYDROCHLORIDE [Concomitant]
     Indication: PREMEDICATION
     Dosage: NOT OTHERWISE SPECIFIED
     Route: 041
     Dates: start: 20120214
  11. RANITIDINE HYDROCHLORIDE [Concomitant]
     Indication: PREMEDICATION
     Dosage: NOT OTHERWISE SPECIFIED
     Route: 041
     Dates: start: 20120214
  12. PREDNISONE [Concomitant]
     Route: 048
     Dates: start: 20120214
  13. PARACETAMOL [Concomitant]
     Indication: INFLUENZA LIKE ILLNESS
     Dosage: EVERY 4-6 HRS
     Route: 048
     Dates: start: 20120408
  14. ALLEGRA-D [Concomitant]
     Indication: RHINITIS ALLERGIC
     Dosage: 60/125- EVERY 12 HOURS
     Route: 048
     Dates: start: 20120410
  15. FENOFIBRATE [Concomitant]
     Indication: HYPERLIPIDAEMIA
     Route: 048
     Dates: start: 201110
  16. ESCITALOPRAM OXALATE [Concomitant]
     Indication: ANXIETY
     Route: 048
     Dates: start: 2004
  17. RAMIPRIL [Concomitant]
     Indication: HYPERTENSION
     Route: 048
     Dates: start: 1999
  18. ALENDRONATE SODIUM [Concomitant]
     Indication: INCONTINENCE
     Route: 048
     Dates: start: 2008
  19. ATORVASTATIN CALCIUM [Concomitant]
     Indication: HYPERLIPIDAEMIA
     Route: 048
     Dates: start: 1991
  20. ERGOCALCIFEROL [Concomitant]
     Indication: NUTRITIONAL SUPPLEMENTATION
     Route: 048
     Dates: start: 2004
  21. MULTIVITAMINS [Concomitant]
     Indication: NUTRITIONAL SUPPLEMENTATION
     Route: 048
     Dates: start: 1992
  22. FISH OIL [Concomitant]
     Indication: NUTRITIONAL SUPPLEMENTATION
     Route: 048
     Dates: start: 1982
  23. LEUPRORELIN ACETATE [Concomitant]
     Indication: PROSTATE CANCER
     Dosage: EVERY 4 MONTHS
     Route: 030
     Dates: start: 2007
  24. PROCHLORPERAZINE EDISYLATE [Concomitant]
     Indication: NAUSEA
     Dosage: EVERY 4 -6 HOURS
     Route: 048
     Dates: start: 20120517, end: 20120521
  25. METOCLOPRAMIDE [Concomitant]
     Indication: NAUSEA
     Dosage: EVERY 4-6 HOURS
     Route: 048
     Dates: start: 20120522
  26. ZOLPIDEM TARTRATE [Concomitant]
     Indication: INSOMNIA
     Dosage: EVERY NIGHT
     Route: 048
     Dates: start: 20120522

REACTIONS (1)
  - Lung infiltration [Recovered/Resolved with Sequelae]
